FAERS Safety Report 21943246 (Version 2)
Quarter: 2023Q1

REPORT INFORMATION
  Report Type: Spontaneous
  Country: US (occurrence: US)
  Receive Date: 20230202
  Receipt Date: 20230209
  Transmission Date: 20230418
  Serious: No
  Sender: FDA-Public Use
  Company Number: US-BRISTOL-MYERS SQUIBB COMPANY-2023-015606

PATIENT
  Age: 74 Year
  Sex: Female

DRUGS (1)
  1. REVLIMID [Suspect]
     Active Substance: LENALIDOMIDE
     Indication: Plasma cell myeloma
     Dosage: FREQUENCY:21 DAYS ON AND 7 DAYS OFF
     Route: 048
     Dates: start: 20200521

REACTIONS (5)
  - Mental status changes [Unknown]
  - General physical condition abnormal [Unknown]
  - Confusional state [Unknown]
  - Amnesia [Unknown]
  - Condition aggravated [Unknown]
